FAERS Safety Report 9945484 (Version 2)
Quarter: 2014Q1

REPORT INFORMATION
  Report Type: Report from Study
  Country: US (occurrence: US)
  Receive Date: 20140303
  Receipt Date: 20140303
  Transmission Date: 20141002
  Serious: Yes (Hospitalization)
  Sender: FDA-Public Use
  Company Number: US-ABBVIE-13P-163-1051015-00

PATIENT
  Age: 52 Year
  Sex: Male

DRUGS (9)
  1. HUMIRA [Suspect]
     Indication: CROHN^S DISEASE
  2. ADDERALL [Concomitant]
     Indication: ATTENTION DEFICIT/HYPERACTIVITY DISORDER
  3. WELLBUTRIN [Concomitant]
     Indication: DEPRESSION
     Dosage: 300 MG XL DAILY
  4. LORAZEPAM [Concomitant]
     Indication: ANXIETY
  5. LISINOPRIL [Concomitant]
     Indication: HYPERTENSION
     Dosage: 20 MG DAILY
  6. TEMAZEPAM [Concomitant]
     Indication: INSOMNIA
     Dosage: AT NIGHT
  7. TRAZODONE [Concomitant]
     Indication: INSOMNIA
     Dosage: AT NIGHT
  8. METFORMIN [Concomitant]
     Indication: TYPE 2 DIABETES MELLITUS
  9. TESTOSTERONE [Concomitant]
     Indication: HYPOGONADISM

REACTIONS (7)
  - Anorectal operation [Unknown]
  - Penile operation [Unknown]
  - Dyspnoea [Unknown]
  - Fatigue [Unknown]
  - Back pain [Unknown]
  - Visual impairment [Unknown]
  - Confusional state [Unknown]
